FAERS Safety Report 21176806 (Version 3)
Quarter: 2022Q3

REPORT INFORMATION
  Report Type: Spontaneous
  Country: JP (occurrence: JP)
  Receive Date: 20220805
  Receipt Date: 20220926
  Transmission Date: 20221027
  Serious: No
  Sender: FDA-Public Use
  Company Number: JP-GSK-JP2022JPN114406

PATIENT

DRUGS (6)
  1. SOTROVIMAB [Suspect]
     Active Substance: SOTROVIMAB
     Indication: COVID-19
     Dosage: UNK
     Route: 042
     Dates: start: 20220729, end: 20220729
  2. MAGNESIUM OXIDE [Suspect]
     Active Substance: MAGNESIUM OXIDE
     Indication: Constipation
     Dosage: 1980 MG/DAY
     Route: 048
     Dates: start: 20220214, end: 20220227
  3. SODIUM PICOSULFATE [Suspect]
     Active Substance: SODIUM PICOSULFATE
     Indication: Constipation
     Dosage: A DOSE OF 10-15 DROPS FOR CONSTIPATION
     Route: 048
     Dates: start: 20220214
  4. FLUTICASONE PROPIONATE\FORMOTEROL FUMARATE [Suspect]
     Active Substance: FLUTICASONE PROPIONATE\FORMOTEROL FUMARATE
     Indication: Cough
     Dosage: 500 ?G, BID
     Route: 055
     Dates: start: 20220730
  5. DEXTROMETHORPHAN HYDROBROMIDE [Suspect]
     Active Substance: DEXTROMETHORPHAN HYDROBROMIDE
     Indication: Cough
     Dosage: 90 MG/DAY
     Route: 048
     Dates: start: 20220730, end: 20220805
  6. FERROUS SULFATE [Suspect]
     Active Substance: FERROUS SULFATE
     Indication: Anaemia
     Dosage: 105 MG/DAY
     Route: 048
     Dates: start: 20220808, end: 20220814

REACTIONS (3)
  - Caesarean section [Unknown]
  - Exposure during pregnancy [Unknown]
  - Delivery [Unknown]

NARRATIVE: CASE EVENT DATE: 20220814
